FAERS Safety Report 19061035 (Version 1)
Quarter: 2021Q1

REPORT INFORMATION
  Report Type: Spontaneous
  Country: FR (occurrence: FR)
  Receive Date: 20210325
  Receipt Date: 20210325
  Transmission Date: 20210420
  Serious: Yes (Death)
  Sender: FDA-Public Use
  Company Number: FR-ROCHE-2790921

PATIENT
  Age: 46 Year
  Sex: Male
  Weight: 78 kg

DRUGS (2)
  1. XELODA [Suspect]
     Active Substance: CAPECITABINE
     Indication: NEUROENDOCRINE TUMOUR
     Route: 048
     Dates: start: 20210106, end: 20210120
  2. TEMODAL [Suspect]
     Active Substance: TEMOZOLOMIDE
     Indication: NEUROENDOCRINE TUMOUR
     Route: 048
     Dates: start: 20210120, end: 20210124

REACTIONS (4)
  - Acute kidney injury [Fatal]
  - Aplasia [Fatal]
  - Septic shock [Fatal]
  - Enterocolitis [Fatal]

NARRATIVE: CASE EVENT DATE: 20210128
